FAERS Safety Report 24141402 (Version 1)
Quarter: 2024Q3

REPORT INFORMATION
  Report Type: Spontaneous
  Country: ES (occurrence: ES)
  Receive Date: 20240726
  Receipt Date: 20240726
  Transmission Date: 20241016
  Serious: Yes (Other)
  Sender: BAYER
  Company Number: None

PATIENT
  Age: 63 Year
  Sex: Male

DRUGS (2)
  1. GADOBUTROL [Suspect]
     Active Substance: GADOBUTROL
     Indication: Magnetic resonance imaging prostate
     Dosage: 1 TOTAL, ONCE
     Route: 042
     Dates: start: 20240611, end: 20240611
  2. CANDESARTAN/HIDROCLOROTIAZIDA RATIOPHARM [Concomitant]
     Dosage: 1 DF, QD
     Route: 048
     Dates: start: 20130809

REACTIONS (1)
  - Presyncope [Recovered/Resolved]

NARRATIVE: CASE EVENT DATE: 20240611
